FAERS Safety Report 6692858-0 (Version None)
Quarter: 2010Q2

REPORT INFORMATION
  Report Type: 
  Country: None (occurrence: None)
  Receive Date: 20100422
  Receipt Date: 20100413
  Transmission Date: 20101027
  Serious: Yes (Hospitalization)
  Sender: FDA-Public Use
  Company Number: ES-WYE-G05910310

PATIENT
  Age: 4 Year
  Sex: Male
  Weight: 13 kg

DRUGS (2)
  1. REFACTO [Suspect]
     Indication: FACTOR VIII DEFICIENCY
     Route: 050
     Dates: start: 20080801, end: 20100406
  2. REFACTO [Suspect]
     Indication: PROPHYLAXIS

REACTIONS (3)
  - FACTOR VIII INHIBITION [None]
  - HAEMATOMA [None]
  - NO THERAPEUTIC RESPONSE [None]
